FAERS Safety Report 7761739-3 (Version None)
Quarter: 2011Q3

REPORT INFORMATION
  Report Type: 
  Country: None (occurrence: None)
  Receive Date: 20110920
  Receipt Date: 20110912
  Transmission Date: 20111222
  Serious: Yes (Other)
  Sender: FDA-Public Use
  Company Number: PHHY2011AU79687

PATIENT
  Sex: Male

DRUGS (3)
  1. VOLTAREN [Suspect]
     Dosage: 12.5 MG, 2 CAPSULES IN MORNING
     Route: 048
     Dates: end: 20110908
  2. VOLTAREN [Suspect]
     Indication: NECK PAIN
     Dosage: 12.5 MG, 2 CAPSULES EVERY 2 HOURS (TOTAL 8 CAPSULES)
     Route: 048
     Dates: start: 20110907
  3. ASCORBIC ACID [Concomitant]
     Dosage: UNK UKN, UNK
     Dates: start: 20110908

REACTIONS (6)
  - NASOPHARYNGITIS [None]
  - THROAT TIGHTNESS [None]
  - FEELING ABNORMAL [None]
  - ERYTHEMA [None]
  - CHILLS [None]
  - PRURITUS [None]
